FAERS Safety Report 14508800 (Version 1)
Quarter: 2018Q1

REPORT INFORMATION
  Report Type: Report from Study
  Country: US (occurrence: US)
  Receive Date: 20180209
  Receipt Date: 20180209
  Transmission Date: 20180509
  Serious: Yes (Other)
  Sender: FDA-Public Use
  Company Number: US-ROCHE-2064222

PATIENT
  Age: 56 Year
  Sex: Female
  Weight: 63.56 kg

DRUGS (2)
  1. ACTEMRA [Suspect]
     Active Substance: TOCILIZUMAB
     Dosage: 162MG EVERY OTHER WEEK
     Route: 058
     Dates: start: 20171215, end: 20180104
  2. ACTEMRA [Suspect]
     Active Substance: TOCILIZUMAB
     Indication: RHEUMATOID ARTHRITIS
     Route: 058
     Dates: start: 201701

REACTIONS (10)
  - Constipation [Recovered/Resolved]
  - Sinusitis [Recovered/Resolved]
  - Viral infection [Unknown]
  - Ulcer [Unknown]
  - Abdominal pain upper [Recovered/Resolved]
  - Gastritis [Unknown]
  - Abdominal discomfort [Recovered/Resolved]
  - Oral mucosal blistering [Recovered/Resolved]
  - Diarrhoea [Not Recovered/Not Resolved]
  - White blood cell count decreased [Not Recovered/Not Resolved]

NARRATIVE: CASE EVENT DATE: 20171217
